FAERS Safety Report 6002964-1 (Version None)
Quarter: 2008Q4

REPORT INFORMATION
  Report Type: 
  Country: None (occurrence: None)
  Receive Date: 20081212
  Receipt Date: 20081124
  Transmission Date: 20090506
  Serious: Yes (Hospitalization)
  Sender: FDA-Public Use
  Company Number: 2008S1021062

PATIENT
  Age: 46 Year
  Sex: Female

DRUGS (6)
  1. METFORMIN HCL [Suspect]
     Indication: TYPE 2 DIABETES MELLITUS
     Dosage: 850 MG; 3 TIMES A DAY
  2. NOVOMIX /01475801/ (INSULIN ASPART) [Concomitant]
  3. RAMIPRIL [Concomitant]
  4. CITALOPRAM HYDROBROMIDE [Concomitant]
  5. QUETIAPINE FUMARATE [Concomitant]
  6. PROCYCLIDINE HYDROCHLORIDE 2MG TAB [Concomitant]

REACTIONS (3)
  - CONTINUOUS HAEMODIAFILTRATION [None]
  - DRUG LEVEL INCREASED [None]
  - LACTIC ACIDOSIS [None]
